FAERS Safety Report 10446760 (Version 1)
Quarter: 2014Q3

REPORT INFORMATION
  Report Type: Spontaneous
  Country: US (occurrence: None)
  Receive Date: 20140909
  Receipt Date: 20140909
  Transmission Date: 20150326
  Serious: Yes (Hospitalization)
  Sender: FDA-Public Use
  Company Number: 2014US003648

PATIENT
  Age: 34 Year
  Sex: Female
  Weight: 179 kg

DRUGS (14)
  1. GABAPENTIN. [Concomitant]
     Active Substance: GABAPENTIN
  2. HUMALOG [Concomitant]
     Active Substance: INSULIN LISPRO
  3. ICLUSIG [Suspect]
     Active Substance: PONATINIB
     Indication: CHRONIC MYELOID LEUKAEMIA
     Route: 048
  4. IPRATROPIUM BROMIDE (IPRATROPIUM BROMIDE) INHALER [Concomitant]
  5. OXYCODONE (OXYCODONE HYDROCHLORIDE) [Concomitant]
  6. PEPCID [Concomitant]
     Active Substance: FAMOTIDINE
  7. SINGULAIR (MONTELUKAST SODIUM) [Concomitant]
  8. SYMBICORT [Concomitant]
     Active Substance: BUDESONIDE\FORMOTEROL FUMARATE DIHYDRATE
  9. ZOFRAN (ONDANSETRON HYDROCHLORIDE) [Concomitant]
  10. ALBUTEROL (SALBUTAMOL SULFATE) INHALER [Concomitant]
  11. DOCUSATE [Concomitant]
     Active Substance: DOCUSATE
  12. THEOPHYLLINE [Concomitant]
     Active Substance: THEOPHYLLINE
  13. AYGESTIN (NORETHISTERONE ACETATE) [Concomitant]
  14. LORATADINE. [Concomitant]
     Active Substance: LORATADINE

REACTIONS (2)
  - Vomiting [None]
  - Dehydration [None]

NARRATIVE: CASE EVENT DATE: 2014
